FAERS Safety Report 4502462-8 (Version None)
Quarter: 2004Q3

REPORT INFORMATION
  Report Type: 
  Country: None (occurrence: None)
  Receive Date: 20040928
  Receipt Date: 20040709
  Transmission Date: 20050211
  Serious: No
  Sender: FDA-Public Use
  Company Number: 04P-163-0266422-00

PATIENT
  Age: 68 Year
  Sex: Female
  Weight: 72.5755 kg

DRUGS (7)
  1. HUMIRA [Suspect]
     Indication: RHEUMATOID ARTHRITIS
     Dosage: 40 MG, 1 IN 2 WK, SUBCUTANEOUS
     Route: 058
     Dates: start: 20040420, end: 20040430
  2. TAMOXIFEN CITRATE [Concomitant]
  3. QBAR [Concomitant]
  4. COMBIVENT [Concomitant]
  5. TELMISARTAN [Concomitant]
  6. AMLODIPINE BESYLATE [Concomitant]
  7. PREDNISONE [Concomitant]

REACTIONS (1)
  - RASH GENERALISED [None]
